FAERS Safety Report 6501343-8 (Version None)
Quarter: 2009Q4

REPORT INFORMATION
  Report Type: 
  Country: None (occurrence: None)
  Receive Date: 20091127
  Receipt Date: 20081124
  Transmission Date: 20100525
  Serious: Yes (Disabling, Other)
  Sender: FDA-Public Use
  Company Number: WAES 0805USA02819

PATIENT
  Age: 66 Year
  Sex: Female

DRUGS (5)
  1. FOSAMAX [Suspect]
     Indication: OSTEOPOROSIS
     Dosage: PO; 70 MG/PO
     Route: 048
     Dates: start: 20010101, end: 20060601
  2. FOSAMAX [Suspect]
     Indication: OSTEOPOROSIS
     Dosage: PO; 70 MG/PO
     Route: 048
     Dates: start: 20060826
  3. FOSAMAX [Suspect]
     Indication: OSTEOPOROSIS
     Dosage: PO; 70 MG/PO
     Route: 048
     Dates: start: 20061227
  4. ATACAND [Concomitant]
  5. CRESTOR [Concomitant]

REACTIONS (10)
  - BONE DISORDER [None]
  - BRONCHIECTASIS [None]
  - HAEMOPTYSIS [None]
  - HERPES VIRUS INFECTION [None]
  - LOOSE TOOTH [None]
  - LUNG DISORDER [None]
  - MUSCULOSKELETAL DISORDER [None]
  - OSTEOMYELITIS [None]
  - OSTEONECROSIS [None]
  - VENOUS INSUFFICIENCY [None]
